FAERS Safety Report 6689106-4 (Version None)
Quarter: 2010Q2

REPORT INFORMATION
  Report Type: 
  Country: None (occurrence: None)
  Receive Date: 20100415
  Receipt Date: 20100408
  Transmission Date: 20101027
  Serious: Yes (Hospitalization)
  Sender: FDA-Public Use
  Company Number: 2010SP020559

PATIENT
  Age: 11 Month
  Sex: Female
  Weight: 7 kg

DRUGS (23)
  1. BETAMETHASONE DIPROPIONATE (TOPICAL) (BETAMETHASONE DIPROPIONATE) [Suspect]
     Indication: DRUG USE FOR UNKNOWN INDICATION
     Dosage: 1 DF; BID; TOP
     Route: 061
  2. BETAMETHASONE VALERATE (BETAMETHASONE VALERATE / 00008503/) [Suspect]
     Indication: DRUG USE FOR UNKNOWN INDICATION
     Dosage: 1 DF; BID; TOP
     Route: 061
  3. ELOCOM (TOPICAL) (MOMETASONE FUROATE) [Suspect]
     Indication: DRUG USE FOR UNKNOWN INDICATION
     Dosage: 1 DF; QD;TOP
     Route: 061
  4. MOMETASONE FUROATE (TOPICAL) (MOMETASONE FUROATE) [Suspect]
     Indication: DRUG USE FOR UNKNOWN INDICATION
     Dosage: 1 DF;BID;TOP; 1 DF;QID;RTL
     Route: 061
  5. HYDROCORTISONE (OTHER MFR) (HYDROCORTISONE/ 00028601/) [Suspect]
     Indication: DRUG USE FOR UNKNOWN INDICATION
     Dosage: 1 DF;BID
  6. ANUSOL-HC (HYDROCORTISONE / ZYNC SULPHATE MONOHYDRATE) (ANUSOL-HC /002 [Suspect]
     Indication: DRUG USE FOR UNKNOWN INDICATION
     Dosage: 1 DF; QID;RTL
  7. DESOCORT 0.05% (DESONIDE) (DESONIDE) [Suspect]
     Indication: DRUG USE FOR UNKNOWN INDICATION
     Dosage: 1 DF;BID;TOP
     Route: 061
  8. EMOCORT 1% (HYDROCORTISONE) (HYDROCORTISONE / 00028601/) [Suspect]
     Indication: DRUG USE FOR UNKNOWN INDICATION
     Dosage: 1 DF;BID; TOP
     Route: 061
  9. HYDERM 1% (HYDROCORTISONE ACETATE) (HYDROCORTISONE ACETATE) [Suspect]
     Indication: DRUG USE FOR UNKNOWN INDICATION
     Dosage: 1 DF;BID; TOP
     Route: 061
  10. CLOBETASOL 0.05% (CLOBETASOL PROPIONATE) [Suspect]
     Indication: DRUG USE FOR UNKNOWN INDICATION
     Dosage: 1 DF;BID;TOP
     Route: 061
  11. CEPHALEXIN (CON.) [Concomitant]
  12. CETAPHIL DAILY FACIAL MOISTURIZER SPF 15 9CON.) [Concomitant]
  13. CLOTRIMAZOLE (CON.) [Concomitant]
  14. CLOXACILLIN (CON.) [Concomitant]
  15. DIPHENHYDRAMINE (CON.) [Concomitant]
  16. DOXEPIN HYROCHLORIDE (CON.) [Concomitant]
  17. EUCERIN UREA 10% (CON.) [Concomitant]
  18. FUSIDIC ACID 9CON.0 [Concomitant]
  19. HYDROXYZINE (CON.) [Concomitant]
  20. KETOTIFEN (CON.) [Concomitant]
  21. NEOCATE (CON.) [Concomitant]
  22. TACROLIMUS (CON.) [Concomitant]
  23. ZINC SULPHATE (CON.) [Concomitant]

REACTIONS (9)
  - BLOOD CORTISOL DECREASED [None]
  - COARCTATION OF THE AORTA [None]
  - CUSHING'S SYNDROME [None]
  - ECHOCARDIOGRAM ABNORMAL [None]
  - GROWTH RETARDATION [None]
  - HYPERCORTICOIDISM [None]
  - HYPOTHALAMO-PITUITARY DISORDER [None]
  - LEFT VENTRICULAR HYPERTROPHY [None]
  - NUCLEAR MAGNETIC RESONANCE IMAGING ABNORMAL [None]
